FAERS Safety Report 16385282 (Version 8)
Quarter: 2019Q4

REPORT INFORMATION
  Report Type: Spontaneous
  Country: US (occurrence: US)
  Receive Date: 20190603
  Receipt Date: 20191206
  Transmission Date: 20200122
  Serious: Yes (Hospitalization, Other)
  Sender: FDA-Public Use
  Company Number: US-PFIZER INC-2019236843

PATIENT
  Age: 63 Year
  Sex: Female
  Weight: 82 kg

DRUGS (3)
  1. IBRANCE [Suspect]
     Active Substance: PALBOCICLIB
     Dosage: 125 MG, CYCLIC (DAY 1-21 EVERY 28 DAYS)
     Route: 048
     Dates: start: 20190515, end: 201908
  2. IBRANCE [Suspect]
     Active Substance: PALBOCICLIB
     Dosage: 75 MG, CYCLIC (DAYS 1-21 OF EVERY 28 DAYS)
     Route: 048
     Dates: start: 20191014
  3. IBRANCE [Suspect]
     Active Substance: PALBOCICLIB
     Indication: BREAST CANCER METASTATIC
     Dosage: 125 MG, CYCLIC (DAY 1-21 EVERY 28 DAYS)
     Route: 048
     Dates: start: 20190514, end: 2019

REACTIONS (9)
  - Headache [Unknown]
  - Haemoglobin decreased [Unknown]
  - Sepsis [Recovered/Resolved]
  - Gallbladder disorder [Unknown]
  - Diarrhoea [Unknown]
  - Vomiting [Recovered/Resolved]
  - White blood cell count decreased [Recovered/Resolved]
  - Device related infection [Recovered/Resolved]
  - Nausea [Recovered/Resolved]

NARRATIVE: CASE EVENT DATE: 2019
